FAERS Safety Report 6436027-8 (Version None)
Quarter: 2009Q4

REPORT INFORMATION
  Report Type: 
  Country: None (occurrence: None)
  Receive Date: 20091110
  Receipt Date: 20091110
  Transmission Date: 20100525
  Serious: No
  Sender: FDA-Public Use
  Company Number: None

PATIENT
  Sex: Female
  Weight: 87.9978 kg

DRUGS (2)
  1. INVEGA [Suspect]
     Indication: ANXIETY
     Dosage: 3 MG ONCE DAILY PO
     Route: 048
     Dates: start: 20091015, end: 20091017
  2. INVEGA [Suspect]
     Indication: DEPRESSION
     Dosage: 3 MG ONCE DAILY PO
     Route: 048
     Dates: start: 20091015, end: 20091017

REACTIONS (4)
  - CONFUSIONAL STATE [None]
  - POOR QUALITY SLEEP [None]
  - RESTLESSNESS [None]
  - TREMOR [None]
